FAERS Safety Report 10023851 (Version 1)
Quarter: 2014Q1

REPORT INFORMATION
  Report Type: Spontaneous
  Country: US (occurrence: None)
  Receive Date: 20140319
  Receipt Date: 20140319
  Transmission Date: 20141002
  Serious: No
  Sender: FDA-Public Use
  Company Number: None

PATIENT
  Age: 68 Year
  Sex: Female
  Weight: 65.77 kg

DRUGS (2)
  1. ATORVASTATIN 20MG [Suspect]
     Indication: BLOOD CHOLESTEROL
     Dosage: 1 PILL AT NIGHT MOUTH
     Route: 048
     Dates: start: 20140301, end: 20140306
  2. MULTI-VITAMINS [Concomitant]

REACTIONS (2)
  - Tooth discolouration [None]
  - Tongue discolouration [None]
